FAERS Safety Report 9204600 (Version 1)
Quarter: 2013Q2

REPORT INFORMATION
  Report Type: Spontaneous
  Country: BR (occurrence: BR)
  Receive Date: 20130402
  Receipt Date: 20130402
  Transmission Date: 20140414
  Serious: Yes (Death, Hospitalization)
  Sender: FDA-Public Use
  Company Number: BR-ROCHE-1208244

PATIENT
  Age: 71 Year
  Sex: Male
  Weight: 50 kg

DRUGS (2)
  1. ZELBORAF [Suspect]
     Indication: MALIGNANT MELANOMA
     Route: 048
     Dates: start: 20121230
  2. ZELBORAF [Suspect]
     Route: 048
     Dates: start: 20130115

REACTIONS (3)
  - Acute myocardial infarction [Unknown]
  - Cardiac disorder [Unknown]
  - Multi-organ failure [Fatal]
